FAERS Safety Report 6153251-2 (Version None)
Quarter: 2009Q2

REPORT INFORMATION
  Report Type: 
  Country: None (occurrence: None)
  Receive Date: 20090413
  Receipt Date: 20090408
  Transmission Date: 20091009
  Serious: No
  Sender: FDA-Public Use
  Company Number: US-B.I. PHARMACEUTICALS,INC./RIDGEFIELD-2009-BP-04378BP

PATIENT
  Sex: Male

DRUGS (7)
  1. FLOMAX [Suspect]
     Indication: POLLAKIURIA
     Dosage: .4MG
     Route: 048
     Dates: start: 20090331, end: 20090402
  2. FLOMAX [Suspect]
     Indication: BENIGN PROSTATIC HYPERPLASIA
  3. OXYBUTIN HCL [Concomitant]
     Indication: BENIGN PROSTATIC HYPERPLASIA
     Dosage: 5MG
     Dates: start: 20070101
  4. OXYBUTIN HCL [Concomitant]
     Indication: POLLAKIURIA
  5. FINASTERIDE [Concomitant]
     Indication: BENIGN PROSTATIC HYPERPLASIA
     Dosage: 5MG
     Dates: start: 20090101
  6. VYTORIN [Concomitant]
     Indication: BLOOD CHOLESTEROL INCREASED
  7. METOPROLOL [Concomitant]
     Indication: HEART RATE

REACTIONS (3)
  - DYSURIA [None]
  - MICTURITION URGENCY [None]
  - WRONG TECHNIQUE IN DRUG USAGE PROCESS [None]
